FAERS Safety Report 9626964 (Version 2)
Quarter: 2013Q4

REPORT INFORMATION
  Report Type: Spontaneous
  Country: DE (occurrence: DE)
  Receive Date: 20131016
  Receipt Date: 20131114
  Transmission Date: 20140711
  Serious: Yes (Disabling, Other)
  Sender: FDA-Public Use
  Company Number: PHHY2013DE115588

PATIENT
  Age: 47 Year
  Sex: Female

DRUGS (6)
  1. ZOMETA [Suspect]
     Indication: BREAST CANCER METASTATIC
     Dosage: UNK UKN, UNK
     Dates: start: 201211, end: 201303
  2. PACLITAXEL [Suspect]
     Dosage: UNK UKN, UNK
     Dates: start: 201306
  3. ZOLADEX [Suspect]
     Indication: BREAST CANCER METASTATIC
     Dosage: UNK UKN, UNK
     Dates: start: 201207, end: 201302
  4. HERCEPTIN [Suspect]
     Indication: BREAST CANCER METASTATIC
     Dosage: UNK UKN, UNK
     Dates: start: 201207
  5. FASLODEX [Suspect]
     Dosage: UNK UKN, UNK
     Dates: start: 201306
  6. PERTUZUMAB [Suspect]
     Dosage: UNK UKN, UNK
     Dates: start: 201306

REACTIONS (1)
  - Scleroderma [Not Recovered/Not Resolved]
